FAERS Safety Report 8875559 (Version 1)
Quarter: 2012Q4

REPORT INFORMATION
  Report Type: Report from Study
  Country: DE (occurrence: DE)
  Receive Date: 20121030
  Receipt Date: 20121030
  Transmission Date: 20130627
  Serious: Yes (Death, Hospitalization)
  Sender: FDA-Public Use
  Company Number: DE-ROCHE-1089363

PATIENT
  Age: 70 Year
  Sex: Female

DRUGS (4)
  1. BEVACIZUMAB [Suspect]
     Indication: BREAST CANCER
     Route: 042
     Dates: start: 20120506, end: 20120628
  2. PACLITAXEL [Suspect]
     Indication: BREAST CANCER
     Route: 042
     Dates: start: 20120705
  3. GRANISETRON HYDROCHLORIDE [Suspect]
     Indication: BREAST CANCER
     Route: 042
     Dates: start: 20120705
  4. DEXAMETHASONE [Suspect]
     Indication: BREAST CANCER
     Route: 042
     Dates: start: 20120705

REACTIONS (5)
  - Metastases to liver [Fatal]
  - Breast cancer [Fatal]
  - Gastrointestinal haemorrhage [Not Recovered/Not Resolved]
  - Enterovesical fistula [Not Recovered/Not Resolved]
  - Large intestine perforation [Not Recovered/Not Resolved]
